FAERS Safety Report 20190367 (Version 5)
Quarter: 2022Q1

REPORT INFORMATION
  Report Type: Report from Study
  Country: GB (occurrence: GB)
  Receive Date: 20211215
  Receipt Date: 20220106
  Transmission Date: 20220423
  Serious: Yes (Congenital Anomaly)
  Sender: FDA-Public Use
  Company Number: GB-TEVA-2021-GB-1985102

PATIENT
  Sex: Male
  Weight: 2.915 kg

DRUGS (3)
  1. RITONAVIR [Suspect]
     Active Substance: RITONAVIR
     Indication: HIV infection
     Route: 064
     Dates: start: 20191028
  2. ATAZANAVIR [Suspect]
     Active Substance: ATAZANAVIR
     Indication: HIV infection
     Route: 064
     Dates: start: 20191028
  3. EMTRICITABINE\TENOFOVIR [Suspect]
     Active Substance: EMTRICITABINE\TENOFOVIR
     Indication: HIV infection
     Route: 064
     Dates: start: 20190828

REACTIONS (6)
  - Trisomy 21 [Unknown]
  - Congenital nystagmus [Unknown]
  - Foetal exposure during pregnancy [Unknown]
  - Nuchal rigidity [Unknown]
  - Melanoderma [Unknown]
  - Transient neonatal pustular melanosis [Unknown]

NARRATIVE: CASE EVENT DATE: 20200101
